FAERS Safety Report 20547898 (Version 3)
Quarter: 2022Q4

REPORT INFORMATION
  Report Type: Spontaneous
  Country: JP (occurrence: JP)
  Receive Date: 20220303
  Receipt Date: 20221214
  Transmission Date: 20230113
  Serious: Yes (Other)
  Sender: FDA-Public Use
  Company Number: JP-ELI_LILLY_AND_COMPANY-JP202106003498

PATIENT
  Age: 74 Year
  Sex: Female
  Weight: 41 kg

DRUGS (5)
  1. NECITUMUMAB [Suspect]
     Active Substance: NECITUMUMAB
     Indication: Squamous cell carcinoma of lung
     Dosage: 800 MG, DAILY
     Route: 041
     Dates: start: 20210401, end: 20220111
  2. GEMCITABINE [Concomitant]
     Active Substance: GEMCITABINE
     Indication: Squamous cell carcinoma of lung
     Dosage: UNK
     Dates: start: 20210401
  3. CISPLATIN [Concomitant]
     Active Substance: CISPLATIN
     Indication: Squamous cell carcinoma of lung
     Dosage: UNK
     Dates: start: 20210401
  4. MAGNESIUM SULFATE [Concomitant]
     Active Substance: MAGNESIUM SULFATE
     Indication: Electrolyte substitution therapy
     Dosage: UNK
     Dates: start: 20210401, end: 20220111
  5. LEVOTHYROXINE [Concomitant]
     Active Substance: LEVOTHYROXINE
     Indication: Hypothyroidism
     Dosage: UNK
     Dates: start: 20210330, end: 20220111

REACTIONS (3)
  - Malignant neoplasm progression [Unknown]
  - Pruritus [Recovering/Resolving]
  - Rash [Unknown]

NARRATIVE: CASE EVENT DATE: 20210427
